FAERS Safety Report 5133438-8 (Version None)
Quarter: 2006Q4

REPORT INFORMATION
  Report Type: 
  Country: None (occurrence: None)
  Receive Date: 20061018
  Receipt Date: 20061004
  Transmission Date: 20070319
  Serious: Yes (Other)
  Sender: FDA-Public Use
  Company Number: 2006JP003708

PATIENT
  Age: 81 Year
  Sex: Female

DRUGS (2)
  1. PROGRAF [Suspect]
     Indication: MYASTHENIA GRAVIS
     Dosage: 1 MG, D,  ORAL
     Route: 048
  2. PREDNISOLONE [Concomitant]

REACTIONS (1)
  - MENINGITIS CRYPTOCOCCAL [None]
